FAERS Safety Report 5189840-1 (Version None)
Quarter: 2006Q4

REPORT INFORMATION
  Report Type: 
  Country: None (occurrence: None)
  Receive Date: 20061215
  Receipt Date: 20061205
  Transmission Date: 20070319
  Serious: Yes (Hospitalization)
  Sender: FDA-Public Use
  Company Number: 2006152413

PATIENT
  Age: 74 Year
  Sex: Male

DRUGS (3)
  1. ATARAX [Suspect]
     Dosage: 50 MG (50 MG, 1 IN 1 D), ORAL
     Route: 048
     Dates: start: 20060829, end: 20060829
  2. TRAMADOL HCL [Suspect]
     Dosage: ORAL
     Route: 048
     Dates: end: 20060829
  3. LASIX [Suspect]
     Dosage: ORAL
     Route: 048
     Dates: end: 20060829

REACTIONS (10)
  - ANOREXIA [None]
  - BLOOD PRESSURE DECREASED [None]
  - FALL [None]
  - GENERAL PHYSICAL HEALTH DETERIORATION [None]
  - HEAD INJURY [None]
  - HYPOGLYCAEMIA [None]
  - LOSS OF CONSCIOUSNESS [None]
  - SPINAL FRACTURE [None]
  - TREATMENT NONCOMPLIANCE [None]
  - WEIGHT DECREASED [None]
